FAERS Safety Report 13897305 (Version 2)
Quarter: 2017Q3

REPORT INFORMATION
  Report Type: Spontaneous
  Country: US (occurrence: US)
  Receive Date: 20170823
  Receipt Date: 20170919
  Transmission Date: 20171127
  Serious: Yes (Hospitalization, Other)
  Sender: FDA-Public Use
  Company Number: US-SMITH AND NEPHEW, INC-2017SMT00516

PATIENT
  Age: 79 Year
  Sex: Male
  Weight: 87.75 kg

DRUGS (9)
  1. COUMADIN [Concomitant]
     Active Substance: WARFARIN SODIUM
     Dosage: 3 MG, 1X/DAY
  2. TRAMADOL. [Concomitant]
     Active Substance: TRAMADOL
     Dosage: 50 MG, AS NEEDED
  3. COLLAGENASE SANTYL [Suspect]
     Active Substance: COLLAGENASE CLOSTRIDIUM HISTOLYTICUM
     Indication: IMPAIRED HEALING
     Dosage: UNK, 1X/DAY
     Route: 061
     Dates: start: 201507, end: 20150808
  4. METFORMIN [Concomitant]
     Active Substance: METFORMIN HYDROCHLORIDE
     Dosage: 500 MG, 1X/DAY
  5. TAMSULOSIN [Concomitant]
     Active Substance: TAMSULOSIN
     Dosage: 4 MG, 1X/DAY
  6. AMLODIPINE [Concomitant]
     Active Substance: AMLODIPINE BESYLATE
     Dosage: 5 MG, 1X/DAY
  7. PROBENECID-COLCHICINE [Concomitant]
     Dosage: 1 DOSAGE UNITS, 1X/DAY
  8. GABAPENTIN. [Concomitant]
     Active Substance: GABAPENTIN
     Dosage: 400 MG, 1X/DAY AT NIGHT
  9. SIMVASTATIN. [Concomitant]
     Active Substance: SIMVASTATIN
     Dosage: 20 MG, 1X/DAY

REACTIONS (6)
  - Wound [Not Recovered/Not Resolved]
  - Peripheral vascular disorder [Unknown]
  - Osteomyelitis [Unknown]
  - Peripheral artery occlusion [Unknown]
  - Off label use [Recovered/Resolved]
  - Amputation [Recovered/Resolved with Sequelae]

NARRATIVE: CASE EVENT DATE: 2015
